FAERS Safety Report 7574407-8 (Version None)
Quarter: 2011Q2

REPORT INFORMATION
  Report Type: 
  Country: None (occurrence: None)
  Receive Date: 20110627
  Receipt Date: 20081215
  Transmission Date: 20111010
  Serious: Yes (Hospitalization, Other)
  Sender: FDA-Public Use
  Company Number: US-BAYER-200840435NA

PATIENT
  Age: 82 Year
  Sex: Male
  Weight: 82 kg

DRUGS (25)
  1. TRASYLOL [Suspect]
     Dosage: 50 ML PER HOUR (1 BOTTLE)
     Route: 042
     Dates: start: 20061201, end: 20061201
  2. HEPARIN [Concomitant]
     Dosage: 30,000 UNITS
     Route: 042
     Dates: start: 20061201, end: 20061201
  3. CONTRAST MEDIA [Concomitant]
     Dosage: UNK
     Route: 042
     Dates: start: 20061024, end: 20061024
  4. PLASMA [Concomitant]
     Dosage: 2 UNITS
     Route: 042
     Dates: start: 20061201, end: 20061201
  5. NIPRIDE [Concomitant]
     Dosage: 50/250
     Route: 042
     Dates: start: 20061201, end: 20061201
  6. TRASYLOL [Suspect]
     Indication: AORTIC VALVE REPLACEMENT
     Dosage: 200 ML BOLUS OVER 30 MINUTES
     Route: 042
     Dates: start: 20061201, end: 20061201
  7. BUSPIRONE HCL [Concomitant]
     Dosage: 10 MG, TID
     Route: 048
  8. ZOCOR [Concomitant]
     Dosage: 40 MG, QD
     Route: 048
  9. NITROGLYCERIN [Concomitant]
     Dosage: AS NEEDED
     Route: 060
  10. LOPRESSOR [Concomitant]
     Dosage: 1 MG
     Route: 042
  11. TRASYLOL [Suspect]
     Indication: MITRAL VALVE REPLACEMENT
     Dosage: 200 ML PRIME PUMP
     Route: 050
     Dates: start: 20061201, end: 20061201
  12. NITROGLYCERIN [Concomitant]
     Dosage: 50 MCG/250
     Route: 042
     Dates: start: 20061201, end: 20061201
  13. CELEXA [Concomitant]
     Dosage: 20 MG, QD
     Route: 048
  14. ALDACTONE [Concomitant]
     Dosage: 2.5 MG
     Route: 048
  15. PLATELETS [Concomitant]
     Dosage: 6
     Route: 042
     Dates: start: 20061201, end: 20061201
  16. XANAX [Concomitant]
     Dosage: 0.25 MG, TID AS NEEDED
     Route: 048
     Dates: start: 20061111
  17. CARDIZEM [Concomitant]
     Dosage: 180 MG, QD
     Route: 048
     Dates: start: 20061111
  18. MANNITOL [Concomitant]
     Dosage: 12.5 GM
     Route: 042
     Dates: start: 20061201, end: 20061201
  19. ALBUMIN (HUMAN) [Concomitant]
     Dosage: 5 %
     Route: 042
     Dates: start: 20061201, end: 20061201
  20. CONTRAST MEDIA [Concomitant]
     Dosage: UNK
     Route: 042
     Dates: start: 20060803, end: 20060803
  21. CARTIA XT [Concomitant]
     Dosage: 180 MG, QD
     Route: 048
  22. RED BLOOD CELLS [Concomitant]
     Dosage: 2 UNITS
     Route: 042
     Dates: start: 20061201, end: 20061201
  23. TRASYLOL [Suspect]
     Indication: CORONARY ARTERY BYPASS
     Dosage: 1 ML TEST DOSE
     Route: 042
     Dates: start: 20061201, end: 20061201
  24. TYLENOL REGULAR [Concomitant]
     Dosage: 500 MG, BID
     Route: 048
  25. IMDUR [Concomitant]
     Dosage: 60 MG, QD

REACTIONS (5)
  - RENAL FAILURE [None]
  - INJURY [None]
  - UNEVALUABLE EVENT [None]
  - PAIN [None]
  - RENAL FAILURE ACUTE [None]
